FAERS Safety Report 16680006 (Version 2)
Quarter: 2019Q3

REPORT INFORMATION
  Report Type: Spontaneous
  Country: US (occurrence: US)
  Receive Date: 20190807
  Receipt Date: 20190905
  Transmission Date: 20191004
  Serious: No
  Sender: FDA-Public Use
  Company Number: US-PFIZER INC-2019317635

PATIENT
  Age: 74 Year
  Sex: Male

DRUGS (2)
  1. FIBERCON [Suspect]
     Active Substance: CALCIUM POLYCARBOPHIL
     Dosage: 1 DF, DAILY (ONE FIBERCON PER DAY)
  2. FIBERCON [Suspect]
     Active Substance: CALCIUM POLYCARBOPHIL
     Indication: DIARRHOEA
     Dosage: 3 DF, DAILY (3 PER DAY)

REACTIONS (5)
  - Product colour issue [Unknown]
  - Poor quality product administered [Unknown]
  - Product commingling [Unknown]
  - Infection [Unknown]
  - Product use issue [Unknown]
